FAERS Safety Report 7542150-7 (Version None)
Quarter: 2011Q2

REPORT INFORMATION
  Report Type: 
  Country: None (occurrence: None)
  Receive Date: 20110613
  Receipt Date: 20110607
  Transmission Date: 20111010
  Serious: Yes (Hospitalization, Other)
  Sender: FDA-Public Use
  Company Number: US-AMGEN-USASP2011029545

PATIENT
  Sex: Male

DRUGS (1)
  1. NPLATE [Suspect]
     Indication: IDIOPATHIC THROMBOCYTOPENIC PURPURA
     Dosage: 540 A?G, UNK
     Dates: start: 20110113, end: 20110215

REACTIONS (3)
  - HOSPITALISATION [None]
  - MYELODYSPLASTIC SYNDROME [None]
  - BONE MARROW RETICULIN FIBROSIS [None]
